FAERS Safety Report 5335188-1 (Version None)
Quarter: 2007Q2

REPORT INFORMATION
  Report Type: 
  Country: None (occurrence: None)
  Receive Date: 20070525
  Receipt Date: 20070515
  Transmission Date: 20071010
  Serious: Yes (Death)
  Sender: FDA-Public Use
  Company Number: IT-PFIZER INC-2006116618

PATIENT
  Sex: Male
  Weight: 55 kg

DRUGS (11)
  1. SU-011,248 [Suspect]
     Indication: RENAL CELL CARCINOMA STAGE UNSPECIFIED
     Route: 048
     Dates: start: 20060704, end: 20060731
  2. SU-011,248 [Suspect]
     Route: 048
     Dates: start: 20060904, end: 20060918
  3. SOLDESAM [Concomitant]
     Route: 048
  4. OMEPRAZOLE [Concomitant]
     Route: 048
     Dates: start: 20060630
  5. DOMPERIDONE [Concomitant]
     Route: 048
     Dates: start: 20060918
  6. MYCOSTATIN [Concomitant]
     Route: 048
     Dates: start: 20060911
  7. TRIATEC [Concomitant]
     Route: 048
     Dates: start: 20040101
  8. CARDIOASPIRINA [Concomitant]
     Route: 048
     Dates: start: 20040101
  9. CONTRAMAL [Concomitant]
     Route: 048
     Dates: start: 20060616
  10. ACETAMINOPHEN [Concomitant]
     Route: 048
     Dates: start: 20060616
  11. DELTACORTENE [Concomitant]
     Route: 048
     Dates: start: 20060630

REACTIONS (1)
  - GENERAL PHYSICAL HEALTH DETERIORATION [None]
